FAERS Safety Report 8878981 (Version 1)
Quarter: 2012Q4

REPORT INFORMATION
  Report Type: 
  Country: CR (occurrence: CR)
  Receive Date: 20121026
  Receipt Date: 20121026
  Transmission Date: 20130627
  Serious: Yes (Hospitalization)
  Sender: FDA-Public Use
  Company Number: CR-ABBOTT-12P-039-1000892-00

PATIENT
  Age: 52 Year
  Sex: Female

DRUGS (1)
  1. HUMIRA [Suspect]
     Indication: ANKYLOSING SPONDYLITIS
     Route: 058

REACTIONS (1)
  - Small intestinal obstruction [Recovering/Resolving]
